FAERS Safety Report 7974810-8 (Version None)
Quarter: 2011Q4

REPORT INFORMATION
  Report Type: 
  Country: None (occurrence: None)
  Receive Date: 20111213
  Receipt Date: 20111205
  Transmission Date: 20120403
  Serious: Yes (Hospitalization)
  Sender: FDA-Public Use
  Company Number: JP-ROCHE-1002176

PATIENT
  Sex: Male

DRUGS (5)
  1. MARZULENE-S [Concomitant]
     Route: 048
  2. GANATON [Concomitant]
     Route: 048
  3. ACTEMRA [Suspect]
     Indication: RHEUMATOID ARTHRITIS
     Route: 041
     Dates: start: 20101116, end: 20101221
  4. MOBIC [Concomitant]
     Route: 048
  5. PREDNISOLONE [Concomitant]
     Indication: RHEUMATOID ARTHRITIS
     Route: 048
     Dates: start: 20090801, end: 20110225

REACTIONS (7)
  - FULL BLOOD COUNT DECREASED [None]
  - INFECTED SKIN ULCER [None]
  - MALAISE [None]
  - ACUTE FEBRILE NEUTROPHILIC DERMATOSIS [None]
  - LYMPHADENOPATHY [None]
  - ALOPECIA [None]
  - PYREXIA [None]
